FAERS Safety Report 12657094 (Version 1)
Quarter: 2016Q3

REPORT INFORMATION
  Report Type: Spontaneous
  Country: US (occurrence: US)
  Receive Date: 20160816
  Receipt Date: 20160816
  Transmission Date: 20161109
  Serious: No
  Sender: FDA-Public Use
  Company Number: US-PERRIGO-16US016967

PATIENT
  Age: 46 Year
  Sex: Male
  Weight: 81.63 kg

DRUGS (3)
  1. VITAMINS NOS [Concomitant]
     Active Substance: VITAMINS
     Indication: SUPPLEMENTATION THERAPY
     Dosage: UNK
     Route: 065
  2. LORATADINE. [Suspect]
     Active Substance: LORATADINE
     Indication: SINUS CONGESTION
     Dosage: 10 MG, QD
     Route: 048
     Dates: start: 2014
  3. LORATADINE. [Suspect]
     Active Substance: LORATADINE
     Indication: EAR CONGESTION
     Dosage: ADDITIONAL 20 MG, SINGLE
     Route: 048
     Dates: start: 20160607, end: 20160607

REACTIONS (2)
  - Accidental overdose [Recovered/Resolved]
  - Off label use [Not Recovered/Not Resolved]

NARRATIVE: CASE EVENT DATE: 2014
